FAERS Safety Report 9165851 (Version 1)
Quarter: 2013Q1

REPORT INFORMATION
  Report Type: Spontaneous
  Country: US (occurrence: US)
  Receive Date: 20130315
  Receipt Date: 20130315
  Transmission Date: 20140127
  Serious: No
  Sender: FDA-Public Use
  Company Number: US-TEVA-370978USA

PATIENT
  Sex: Female

DRUGS (2)
  1. IPRATROPIUM [Suspect]
     Route: 055
  2. BROVANA [Suspect]
     Route: 055

REACTIONS (1)
  - Dysphonia [Not Recovered/Not Resolved]
